FAERS Safety Report 7591985-3 (Version None)
Quarter: 2011Q2

REPORT INFORMATION
  Report Type: 
  Country: None (occurrence: None)
  Receive Date: 20110606
  Receipt Date: 20100921
  Transmission Date: 20111010
  Serious: Yes (Disabling)
  Sender: FDA-Public Use
  Company Number: US-SEPTODONT-201000181

PATIENT
  Age: 43 Year
  Sex: Female

DRUGS (3)
  1. SEPTOCAINE [Suspect]
     Indication: LOCAL ANAESTHESIA
     Dosage: DENTAL
     Route: 004
  2. LIDOCAINE [Concomitant]
  3. CARBOCAINE [Concomitant]

REACTIONS (1)
  - GINGIVAL PAIN [None]
